FAERS Safety Report 15635454 (Version 2)
Quarter: 2019Q1

REPORT INFORMATION
  Report Type: Other
  Country: US (occurrence: UG)
  Receive Date: 20181120
  Receipt Date: 20190123
  Transmission Date: 20190417
  Serious: Yes (Congenital Anomaly, Other)
  Sender: FDA-Public Use
  Company Number: US-MACLEODS PHARMACEUTICALS US LTD-MAC2018018678

PATIENT

DRUGS (3)
  1. TENOFOVIR 300MG [Suspect]
     Active Substance: TENOFOVIR DISOPROXIL
     Indication: HIV INFECTION
     Dosage: 300 MILLIGRAM, QD
     Route: 064
     Dates: start: 20180322
  2. EFAVIRENZ 600 MG [Suspect]
     Active Substance: EFAVIRENZ
     Indication: HIV INFECTION
     Dosage: 600 MILLIGRAM, QD
     Route: 064
     Dates: start: 20180322
  3. LAMIVUDINE. [Suspect]
     Active Substance: LAMIVUDINE
     Indication: HIV INFECTION
     Dosage: 300 MILLIGRAM, QD
     Route: 064
     Dates: start: 20180322

REACTIONS (3)
  - Foetal exposure during pregnancy [Unknown]
  - Birth mark [Unknown]
  - Umbilical hernia [Unknown]

NARRATIVE: CASE EVENT DATE: 20180322
